FAERS Safety Report 21027217 (Version 4)
Quarter: 2022Q3

REPORT INFORMATION
  Report Type: Spontaneous
  Country: JP (occurrence: JP)
  Receive Date: 20220630
  Receipt Date: 20220823
  Transmission Date: 20221026
  Serious: Yes (Hospitalization)
  Sender: FDA-Public Use
  Company Number: JP-GLAXOSMITHKLINE-JP2022JPN096349

PATIENT

DRUGS (2)
  1. NUCALA [Suspect]
     Active Substance: MEPOLIZUMAB
     Indication: Eosinophilic granulomatosis with polyangiitis
     Dosage: 300 MG EVERY 4 WEEKS
     Dates: start: 20210819, end: 202206
  2. NUCALA [Suspect]
     Active Substance: MEPOLIZUMAB
     Dosage: 300 MG EVERY 4 WEEKS

REACTIONS (2)
  - Haematoma [Recovered/Resolved]
  - Quarantine [Unknown]

NARRATIVE: CASE EVENT DATE: 20220601
